FAERS Safety Report 6896405-X (Version None)
Quarter: 2010Q3

REPORT INFORMATION
  Report Type: 
  Country: None (occurrence: None)
  Receive Date: 20100802
  Receipt Date: 20100730
  Transmission Date: 20110219
  Serious: Yes (Life-Threatening, Disabling)
  Sender: FDA-Public Use
  Company Number: JP-SANOFI-AVENTIS-2010SA044740

PATIENT
  Sex: Female

DRUGS (1)
  1. ELPLAT [Suspect]

REACTIONS (1)
  - HEPATIC ENCEPHALOPATHY [None]
